FAERS Safety Report 20010358 (Version 20)
Quarter: 2025Q1

REPORT INFORMATION
  Report Type: Report from Study
  Country: US (occurrence: US)
  Receive Date: 20211028
  Receipt Date: 20250220
  Transmission Date: 20250408
  Serious: Yes (Hospitalization, Other)
  Sender: TAKEDA
  Company Number: US-TAKEDA-2021TUS065075

PATIENT
  Age: 72 Year
  Sex: Male
  Weight: 59 kg

DRUGS (33)
  1. .ALPHA.1-PROTEINASE INHIBITOR HUMAN [Suspect]
     Active Substance: .ALPHA.1-PROTEINASE INHIBITOR HUMAN
     Indication: Alpha-1 antitrypsin deficiency
     Dosage: UNK UNK, 1/WEEK
     Dates: start: 20180120
  2. .ALPHA.1-PROTEINASE INHIBITOR HUMAN [Suspect]
     Active Substance: .ALPHA.1-PROTEINASE INHIBITOR HUMAN
     Dosage: UNK UNK, 1/WEEK
     Dates: start: 20210222
  3. .ALPHA.1-PROTEINASE INHIBITOR HUMAN [Suspect]
     Active Substance: .ALPHA.1-PROTEINASE INHIBITOR HUMAN
     Dosage: 60 MILLIGRAM/KILOGRAM, 1/WEEK
  4. IBUPROFEN [Concomitant]
     Active Substance: IBUPROFEN
  5. ZYRTEC [Concomitant]
     Active Substance: CETIRIZINE HYDROCHLORIDE
  6. DULERA [Concomitant]
     Active Substance: FORMOTEROL FUMARATE DIHYDRATE\MOMETASONE FUROATE
  7. EPINEPHRINE [Concomitant]
     Active Substance: EPINEPHRINE
  8. SODIUM CHLORIDE [Concomitant]
     Active Substance: SODIUM CHLORIDE
  9. PFIZER-BIONTECH COVID-19 VACCINE [Concomitant]
     Active Substance: TOZINAMERAN
  10. ALBUTEROL SULFATE [Concomitant]
     Active Substance: ALBUTEROL SULFATE
  11. FLUAD QUADRIVALENT NOS [Concomitant]
     Active Substance: INFLUENZA A VIRUS A/HONG KONG/2671/2019 IVR-208 (H3N2) ANTIGEN (FORMALDEHYDE INACTIVATED)\INFLUENZA
  12. VENTOLIN HFA [Concomitant]
     Active Substance: ALBUTEROL SULFATE
  13. VITAMIN D3 [Concomitant]
     Active Substance: CHOLECALCIFEROL
  14. PREDNISONE [Concomitant]
     Active Substance: PREDNISONE
  15. DIPHENHYDRAMINE HYDROCHLORIDE [Concomitant]
     Active Substance: DIPHENHYDRAMINE HYDROCHLORIDE
  16. FUROSEMIDE [Concomitant]
     Active Substance: FUROSEMIDE
  17. AZITHROMYCIN [Concomitant]
     Active Substance: AZITHROMYCIN
  18. CEFPODOXIME [Concomitant]
     Active Substance: CEFPODOXIME
  19. AMOXICILLIN [Concomitant]
     Active Substance: AMOXICILLIN
  20. FLUARIX NOS [Concomitant]
     Active Substance: INFLUENZA VIRUS VACCINE
  21. FLUARIX NOS [Concomitant]
     Active Substance: INFLUENZA VIRUS VACCINE
  22. NYSTATIN [Concomitant]
     Active Substance: NYSTATIN
  23. DIPHENHYDRAMINE [Concomitant]
     Active Substance: DIPHENHYDRAMINE
  24. MEDROL [Concomitant]
     Active Substance: METHYLPREDNISOLONE
  25. OXYGEN [Concomitant]
     Active Substance: OXYGEN
  26. DOXYCYCLINE HYCLATE [Concomitant]
     Active Substance: DOXYCYCLINE HYCLATE
  27. ELIQUIS [Concomitant]
     Active Substance: APIXABAN
  28. MUCINEX [Concomitant]
     Active Substance: GUAIFENESIN
  29. SYMBICORT [Concomitant]
     Active Substance: BUDESONIDE\FORMOTEROL FUMARATE DIHYDRATE
  30. NOVAVAX COVID-19 VACCINE, ADJUVANTED [Concomitant]
     Active Substance: NVX-COV2373
  31. DOXYCYCLINE [Concomitant]
     Active Substance: DOXYCYCLINE
  32. FAMOTIDINE [Concomitant]
     Active Substance: FAMOTIDINE
  33. NASACORT [Concomitant]
     Active Substance: TRIAMCINOLONE ACETONIDE

REACTIONS (31)
  - Pneumonia [Unknown]
  - Acute kidney injury [Unknown]
  - Electrolyte imbalance [Unknown]
  - Blood lactic acid increased [Unknown]
  - Emphysema [Unknown]
  - Aspiration [Unknown]
  - Pulmonary congestion [Unknown]
  - Chronic obstructive pulmonary disease [Unknown]
  - Chest pain [Unknown]
  - Dyspnoea [Unknown]
  - Fluid retention [Unknown]
  - Peripheral swelling [Unknown]
  - Oropharyngeal pain [Not Recovered/Not Resolved]
  - Fall [Unknown]
  - Multiple allergies [Not Recovered/Not Resolved]
  - Skin laceration [Unknown]
  - Increased tendency to bruise [Unknown]
  - Productive cough [Unknown]
  - Skin abrasion [Unknown]
  - Wound secretion [Unknown]
  - Hypertension [Unknown]
  - Erythema [Unknown]
  - Upper-airway cough syndrome [Not Recovered/Not Resolved]
  - Contusion [Unknown]
  - Skin laceration [Unknown]
  - Skin lesion [Unknown]
  - Sinusitis [Unknown]
  - Oedema peripheral [Unknown]
  - Lung disorder [Unknown]
  - Cough [Unknown]
  - Upper respiratory tract infection [Unknown]

NARRATIVE: CASE EVENT DATE: 20230314
